FAERS Safety Report 18673849 (Version 1)
Quarter: 2020Q4

REPORT INFORMATION
  Report Type: Other
  Country: US (occurrence: US)
  Receive Date: 20201229
  Receipt Date: 20201229
  Transmission Date: 20210114
  Serious: Yes (Other)
  Sender: FDA-Public Use
  Company Number: US-ROCHE-1927035

PATIENT
  Sex: Female
  Weight: 76.27 kg

DRUGS (6)
  1. TRAMADOL. [Concomitant]
     Active Substance: TRAMADOL
     Indication: RESTLESS LEGS SYNDROME
     Dosage: TOTAL OF 150 MG/DAY
     Route: 048
  2. RITUXAN [Suspect]
     Active Substance: RITUXIMAB
     Indication: RELAPSING MULTIPLE SCLEROSIS
     Dosage: 300 MG ON DAY 1 AND 15, THEN EVERY 6 MONTH
     Route: 041
  3. PREGABALIN. [Concomitant]
     Active Substance: PREGABALIN
     Route: 048
  4. RITUXAN [Suspect]
     Active Substance: RITUXIMAB
     Indication: MULTIPLE SCLEROSIS
     Dosage: 300 MG ON DAY 1 AND 15, THEN EVERY 6 MONTH
     Route: 041
  5. OCREVUS [Suspect]
     Active Substance: OCRELIZUMAB
     Indication: PRIMARY PROGRESSIVE MULTIPLE SCLEROSIS
     Route: 042
     Dates: start: 2017
  6. RITUXAN [Suspect]
     Active Substance: RITUXIMAB
     Route: 041
     Dates: start: 2014, end: 2017

REACTIONS (9)
  - Osteomyelitis [Recovered/Resolved]
  - Off label use [Unknown]
  - Intentional product use issue [Unknown]
  - Fall [Unknown]
  - Amnesia [Not Recovered/Not Resolved]
  - Vision blurred [Not Recovered/Not Resolved]
  - Alopecia [Not Recovered/Not Resolved]
  - Loose tooth [Not Recovered/Not Resolved]
  - Tooth fracture [Not Recovered/Not Resolved]

NARRATIVE: CASE EVENT DATE: 2018
